FAERS Safety Report 18278701 (Version 1)
Quarter: 2020Q3

REPORT INFORMATION
  Report Type: Spontaneous
  Country: CA (occurrence: CA)
  Receive Date: 20200917
  Receipt Date: 20200917
  Transmission Date: 20201103
  Serious: Yes (Other)
  Sender: FDA-Public Use
  Company Number: CA-ASTRAZENECA-2020SF08555

PATIENT
  Age: 63 Year
  Sex: Male

DRUGS (1)
  1. SYMBICORT [Suspect]
     Active Substance: BUDESONIDE\FORMOTEROL FUMARATE DIHYDRATE
     Dosage: 200 MCG, TWO INHALATIONS, TWO TIMES A DAY
     Route: 055

REACTIONS (5)
  - Device delivery system issue [Unknown]
  - Incorrect dose administered [Recovered/Resolved]
  - Cataract [Unknown]
  - Visual impairment [Unknown]
  - Circumstance or information capable of leading to medication error [Unknown]

NARRATIVE: CASE EVENT DATE: 2019
